FAERS Safety Report 9177369 (Version 2)
Quarter: 2015Q4

REPORT INFORMATION
  Report Type: Spontaneous
  Country: US (occurrence: US)
  Receive Date: 20130321
  Receipt Date: 20151026
  Transmission Date: 20160305
  Serious: Yes (Other)
  Sender: FDA-Public Use
  Company Number: PHEH2013US006520

PATIENT
  Age: 76 Year
  Sex: Female

DRUGS (4)
  1. AZATHIOPRINE. [Concomitant]
     Active Substance: AZATHIOPRINE
     Indication: PRODUCT USED FOR UNKNOWN INDICATION
     Dosage: 50 MG, UNK
     Route: 048
     Dates: start: 20141021
  2. RECLAST [Suspect]
     Active Substance: ZOLEDRONIC ACID
     Indication: OSTEOPOROSIS
     Dosage: 5 MG, UNK
     Route: 042
     Dates: start: 20090210
  3. ATENOLOL. [Concomitant]
     Active Substance: ATENOLOL
     Indication: PRODUCT USED FOR UNKNOWN INDICATION
     Dosage: 50 MG, UNK
     Route: 048
     Dates: start: 20141222
  4. IBUPROFEN. [Concomitant]
     Active Substance: IBUPROFEN
     Indication: PRODUCT USED FOR UNKNOWN INDICATION
     Dosage: 800 MG, UNK
     Route: 048
     Dates: start: 20140612

REACTIONS (31)
  - Cataract [Unknown]
  - Back pain [Unknown]
  - Chronic kidney disease [Unknown]
  - Polymyalgia rheumatica [Unknown]
  - Mobility decreased [Unknown]
  - Injury [Unknown]
  - Intervertebral disc protrusion [Unknown]
  - Bursitis [Unknown]
  - Fracture pain [Unknown]
  - Fall [Unknown]
  - Asthma [Unknown]
  - Anxiety [Unknown]
  - Joint swelling [Unknown]
  - Anhedonia [Unknown]
  - Spinal disorder [Unknown]
  - Arthropathy [Unknown]
  - Arthralgia [Unknown]
  - Femur fracture [Unknown]
  - Chronic obstructive pulmonary disease [Unknown]
  - Gait disturbance [Unknown]
  - Tenderness [Unknown]
  - Osteoarthritis [Unknown]
  - Pain in extremity [Unknown]
  - Bone disorder [Unknown]
  - Atypical femur fracture [Unknown]
  - Bronchitis [Unknown]
  - Knee deformity [Unknown]
  - Procedural nausea [Unknown]
  - Procedural vomiting [Unknown]
  - Anaemia [Unknown]
  - Fatigue [Unknown]

NARRATIVE: CASE EVENT DATE: 20101110
